FAERS Safety Report 25006905 (Version 1)
Quarter: 2025Q1

REPORT INFORMATION
  Report Type: Spontaneous
  Country: CA (occurrence: CA)
  Receive Date: 20250225
  Receipt Date: 20250225
  Transmission Date: 20250409
  Serious: Yes (Other)
  Sender: CSL BEHRING
  Company Number: CA-BEH-2025196711

PATIENT
  Age: 61 Year
  Sex: Male
  Weight: 76 kg

DRUGS (6)
  1. HUMAN IMMUNOGLOBULIN G [Suspect]
     Active Substance: HUMAN IMMUNOGLOBULIN G
     Indication: Product used for unknown indication
     Route: 042
  2. DAPSONE [Suspect]
     Active Substance: DAPSONE
     Indication: Product used for unknown indication
     Route: 065
  3. MONTELUKAST [Suspect]
     Active Substance: MONTELUKAST
     Indication: Product used for unknown indication
     Route: 065
  4. OMALIZUMAB [Suspect]
     Active Substance: OMALIZUMAB
     Indication: Chronic spontaneous urticaria
     Route: 058
  5. OMALIZUMAB [Suspect]
     Active Substance: OMALIZUMAB
     Route: 058
  6. PREDNISONE [Suspect]
     Active Substance: PREDNISONE
     Indication: Product used for unknown indication
     Route: 065

REACTIONS (24)
  - Angioedema [Recovered/Resolved]
  - Anxiety [Recovered/Resolved]
  - Erythema [Recovered/Resolved]
  - Folliculitis [Recovered/Resolved]
  - Gastrointestinal inflammation [Recovered/Resolved]
  - Genital discomfort [Recovered/Resolved]
  - Genital swelling [Recovered/Resolved]
  - Herpes zoster [Recovered/Resolved]
  - Inappropriate schedule of product administration [Recovered/Resolved]
  - Limb discomfort [Recovered/Resolved]
  - Lip swelling [Recovered/Resolved]
  - Muscle swelling [Recovered/Resolved]
  - Oropharyngeal discomfort [Recovered/Resolved]
  - Peripheral swelling [Recovered/Resolved]
  - Pharyngeal swelling [Recovered/Resolved]
  - Pruritus [Recovered/Resolved]
  - Rash [Recovered/Resolved]
  - Rosacea [Recovered/Resolved]
  - Swelling [Recovered/Resolved]
  - Swelling face [Recovered/Resolved]
  - Swollen tongue [Recovered/Resolved]
  - Therapeutic product effect incomplete [Recovered/Resolved]
  - Urticaria [Recovered/Resolved]
  - Weight decreased [Recovered/Resolved]
